FAERS Safety Report 18345647 (Version 1)
Quarter: 2020Q4

REPORT INFORMATION
  Report Type: Spontaneous
  Country: US (occurrence: US)
  Receive Date: 20201005
  Receipt Date: 20201005
  Transmission Date: 20210114
  Serious: No
  Sender: FDA-Public Use
  Company Number: US-FAGRON STERILE SERVICES-2092417

PATIENT

DRUGS (1)
  1. 2000295- EPHEDRINE SULFATE 10MG/ML 50MG PER 5ML IN A 5ML SYRINGE [Suspect]
     Active Substance: EPHEDRINE SULFATE

REACTIONS (1)
  - Drug ineffective [None]
